FAERS Safety Report 5069919-5 (Version None)
Quarter: 2006Q3

REPORT INFORMATION
  Report Type: 
  Country: None (occurrence: None)
  Receive Date: 20060714
  Receipt Date: 20060331
  Transmission Date: 20061208
  Serious: No
  Sender: FDA-Public Use
  Company Number: 2006SP001521

PATIENT
  Age: 53 Year
  Sex: Male
  Weight: 85.2762 kg

DRUGS (8)
  1. LUNESTA [Suspect]
     Indication: INSOMNIA
     Dosage: SEE IMAGE
     Route: 048
     Dates: start: 20051202
  2. PAXIL [Concomitant]
  3. VYTORIN [Concomitant]
  4. TRIAMTERENE [Concomitant]
  5. METOPROLOL TARTRATE [Concomitant]
  6. DIGOXIN [Concomitant]
  7. RANITIDINE [Concomitant]
  8. WARFARIN SODIUM [Concomitant]

REACTIONS (2)
  - ABNORMAL DREAMS [None]
  - DRUG EFFECT DECREASED [None]
